FAERS Safety Report 7194209-4 (Version None)
Quarter: 2010Q4

REPORT INFORMATION
  Report Type: 
  Country: None (occurrence: None)
  Receive Date: 20101223
  Receipt Date: 20101217
  Transmission Date: 20110411
  Serious: Yes (Other)
  Sender: FDA-Public Use
  Company Number: US-AMGEN-USASP2010010173

PATIENT

DRUGS (6)
  1. PROCRIT [Suspect]
     Indication: ANAEMIA
     Dosage: 10000 UNK, QWK
     Dates: start: 20090601, end: 20100201
  2. PROCRIT [Suspect]
     Dosage: 20000 UNK, UNK
     Dates: start: 20100201, end: 20101201
  3. ACCUPRIL [Concomitant]
  4. FLAGYL [Concomitant]
  5. NEORAL [Concomitant]
  6. CELLCEPT [Concomitant]

REACTIONS (1)
  - ANTI-ERYTHROPOIETIN ANTIBODY [None]
